FAERS Safety Report 13398121 (Version 3)
Quarter: 2017Q2

REPORT INFORMATION
  Report Type: Spontaneous
  Country: JP (occurrence: JP)
  Receive Date: 20170403
  Receipt Date: 20170530
  Transmission Date: 20170830
  Serious: Yes (Life-Threatening, Hospitalization, Other)
  Sender: FDA-Public Use
  Company Number: PHJP2017JP000869

PATIENT
  Age: 54 Year
  Sex: Female
  Weight: 46 kg

DRUGS (7)
  1. RINDERON V [Suspect]
     Active Substance: BETAMETHASONE VALERATE
     Indication: PRODUCT USED FOR UNKNOWN INDICATION
     Dosage: 1 MG, QD
     Route: 048
     Dates: start: 20161118, end: 20170325
  2. LANSOPRAZOLE. [Concomitant]
     Active Substance: LANSOPRAZOLE
     Indication: PROPHYLAXIS AGAINST GASTROINTESTINAL ULCER
     Dosage: 15 MG, UNK
     Route: 048
     Dates: start: 20170104, end: 20170325
  3. DENOTAS [Concomitant]
     Active Substance: CALCIUM CARBONATE\CHOLECALCIFEROL\MAGNESIUM CARBONATE
     Indication: PRODUCT USED FOR UNKNOWN INDICATION
     Dosage: 2 DF, QD
     Route: 048
     Dates: start: 20160122, end: 20170325
  4. AFINITOR [Suspect]
     Active Substance: EVEROLIMUS
     Dosage: 5 MG, QD
     Route: 048
     Dates: start: 20170206, end: 20170325
  5. AFINITOR [Suspect]
     Active Substance: EVEROLIMUS
     Indication: BREAST CANCER
     Dosage: 5 MG, QD
     Route: 048
     Dates: start: 20161219, end: 20170104
  6. AROMASIN [Concomitant]
     Active Substance: EXEMESTANE
     Indication: BREAST CANCER
     Dosage: 25 MG, QD
     Route: 048
     Dates: start: 20160219, end: 20170325
  7. RANMARK [Concomitant]
     Active Substance: DENOSUMAB
     Indication: PRODUCT USED FOR UNKNOWN INDICATION
     Dosage: UNK
     Route: 065

REACTIONS (14)
  - Disseminated intravascular coagulation [Not Recovered/Not Resolved]
  - Breast cancer [Unknown]
  - Sepsis [Recovered/Resolved]
  - Pneumonia bacterial [Not Recovered/Not Resolved]
  - Dyspnoea exertional [Unknown]
  - Acinetobacter test positive [Unknown]
  - Dyspnoea [Unknown]
  - Cough [Unknown]
  - Malignant neoplasm progression [Unknown]
  - Hypoxia [Unknown]
  - Haemoglobin decreased [Unknown]
  - Pyrexia [Unknown]
  - Metastases to liver [Unknown]
  - Immunodeficiency [Unknown]

NARRATIVE: CASE EVENT DATE: 20161219
